FAERS Safety Report 12288419 (Version 1)
Quarter: 2016Q2

REPORT INFORMATION
  Report Type: Spontaneous
  Country: US (occurrence: US)
  Receive Date: 20160420
  Receipt Date: 20160420
  Transmission Date: 20160815
  Serious: Yes (Hospitalization)
  Sender: FDA-Public Use
  Company Number: US-ALLERGAN-1625440US

PATIENT
  Age: 72 Year
  Sex: Female
  Weight: 67.57 kg

DRUGS (14)
  1. CALCIUM + VITAMIN D [Concomitant]
     Active Substance: CALCIUM\VITAMIN D
     Indication: PRODUCT USED FOR UNKNOWN INDICATION
  2. CLONAZEPAM. [Concomitant]
     Active Substance: CLONAZEPAM
     Indication: PRODUCT USED FOR UNKNOWN INDICATION
     Dosage: 2 MG, QHS
  3. BENICAR [Concomitant]
     Active Substance: OLMESARTAN MEDOXOMIL
     Indication: PRODUCT USED FOR UNKNOWN INDICATION
     Dosage: 40 MG, UNK
  4. NORCO [Concomitant]
     Active Substance: ACETAMINOPHEN\HYDROCODONE BITARTRATE
     Indication: PRODUCT USED FOR UNKNOWN INDICATION
     Dosage: UNK UNK, Q4HR
  5. OMEPRAZOLE. [Concomitant]
     Active Substance: OMEPRAZOLE
     Indication: PRODUCT USED FOR UNKNOWN INDICATION
     Dosage: 40 MG, UNK
  6. TYLENOL [Concomitant]
     Active Substance: ACETAMINOPHEN
     Indication: PRODUCT USED FOR UNKNOWN INDICATION
     Dosage: 325 MG, PRN
  7. LINZESS [Concomitant]
     Active Substance: LINACLOTIDE
     Indication: PRODUCT USED FOR UNKNOWN INDICATION
     Dosage: 249 ?G, UNK
  8. VITAMIN D3 [Concomitant]
     Active Substance: CHOLECALCIFEROL
     Indication: PRODUCT USED FOR UNKNOWN INDICATION
  9. ASPIRIN. [Concomitant]
     Active Substance: ASPIRIN
     Indication: PRODUCT USED FOR UNKNOWN INDICATION
     Dosage: 81 MG, UNK
  10. VITAMIN C [Concomitant]
     Active Substance: ASCORBIC ACID
     Indication: PRODUCT USED FOR UNKNOWN INDICATION
  11. BOTOX [Suspect]
     Active Substance: ONABOTULINUMTOXINA
     Dosage: 100 UNITS, SINGLE
     Route: 030
     Dates: start: 20150410, end: 20150410
  12. FISH OIL [Concomitant]
     Active Substance: FISH OIL
     Dosage: 1000 MG, UNK
  13. COENZIME Q10 [Concomitant]
     Indication: PRODUCT USED FOR UNKNOWN INDICATION
  14. BOTOX [Suspect]
     Active Substance: ONABOTULINUMTOXINA
     Indication: MUSCLE SPASTICITY
     Dosage: 100 UNITS, SINGLE
     Route: 030
     Dates: start: 20150410, end: 20150410

REACTIONS (7)
  - Abasia [Not Recovered/Not Resolved]
  - Hypersensitivity [Unknown]
  - Speech disorder [Not Recovered/Not Resolved]
  - Wheelchair user [Not Recovered/Not Resolved]
  - Dysstasia [Not Recovered/Not Resolved]
  - Muscular weakness [Not Recovered/Not Resolved]
  - Gait disturbance [Not Recovered/Not Resolved]

NARRATIVE: CASE EVENT DATE: 2015
